FAERS Safety Report 9726539 (Version 1)
Quarter: 2013Q4

REPORT INFORMATION
  Report Type: Report from Study
  Country: CA (occurrence: CA)
  Receive Date: 20131203
  Receipt Date: 20131203
  Transmission Date: 20140711
  Serious: Yes (Hospitalization)
  Sender: FDA-Public Use
  Company Number: CA-UCBSA-104075

PATIENT
  Age: 51 Year
  Sex: Female
  Weight: 90.72 kg

DRUGS (9)
  1. CIMZIA [Suspect]
     Indication: RHEUMATOID ARTHRITIS
     Route: 058
     Dates: start: 20130603, end: 2013
  2. CIMZIA [Suspect]
     Indication: RHEUMATOID ARTHRITIS
     Dosage: 3RD LOADING DOSE
     Route: 058
     Dates: start: 20130506, end: 20130506
  3. CIMZIA [Suspect]
     Indication: RHEUMATOID ARTHRITIS
     Dosage: 1ST AND 2ND LOADING DOSES ONLY
     Route: 058
     Dates: start: 20130114, end: 20130128
  4. MTX [Concomitant]
     Indication: RHEUMATOID ARTHRITIS
     Route: 058
     Dates: start: 20130105
  5. PLAQUENIL [Concomitant]
     Indication: RHEUMATOID ARTHRITIS
     Route: 048
     Dates: start: 2000
  6. VIT D [Concomitant]
     Indication: VITAMIN SUPPLEMENTATION
     Route: 048
  7. CALCIUM [Concomitant]
     Indication: MINERAL SUPPLEMENTATION
     Route: 048
  8. FOLIC ACID [Concomitant]
     Indication: VITAMIN SUPPLEMENTATION
     Dosage: 4 DAYS PER WEEK
     Route: 048
  9. TYLENOL ARTHRITIS [Concomitant]
     Indication: PAIN
     Route: 048

REACTIONS (1)
  - Gastrointestinal injury [Recovered/Resolved]
